FAERS Safety Report 21541171 (Version 2)
Quarter: 2023Q2

REPORT INFORMATION
  Report Type: Spontaneous
  Country: KR (occurrence: KR)
  Receive Date: 20221102
  Receipt Date: 20230601
  Transmission Date: 20230722
  Serious: Yes (Hospitalization)
  Sender: FDA-Public Use
  Company Number: KR-MYLANLABS-2022M1119673

PATIENT
  Age: 52 Year
  Sex: Male

DRUGS (2)
  1. CELEBREX [Suspect]
     Active Substance: CELECOXIB
     Indication: Muscular dystrophy
     Dosage: 1 DOSAGE FORM, QD
     Route: 048
     Dates: start: 20181018, end: 20181018
  2. LYRICA [Suspect]
     Active Substance: PREGABALIN
     Indication: Muscular dystrophy
     Dosage: 1 DOSAGE FORM, QD
     Route: 048
     Dates: start: 20181018

REACTIONS (5)
  - Lip swelling [Recovered/Resolved]
  - Tremor [Recovered/Resolved]
  - Urticaria [Recovered/Resolved]
  - Pruritus [Recovered/Resolved]
  - Off label use [Unknown]

NARRATIVE: CASE EVENT DATE: 20181018
